FAERS Safety Report 16468938 (Version 1)
Quarter: 2019Q2

REPORT INFORMATION
  Report Type: Spontaneous
  Country: PT (occurrence: PT)
  Receive Date: 20190624
  Receipt Date: 20190624
  Transmission Date: 20190711
  Serious: Yes (Hospitalization, Other)
  Sender: FDA-Public Use
  Company Number: PT-PANACEA BIOTEC LIMITED-000001

PATIENT
  Age: 48 Year

DRUGS (4)
  1. MYCOPHENOLATE MOFETIL. [Suspect]
     Active Substance: MYCOPHENOLATE MOFETIL
     Indication: LUNG TRANSPLANT
     Route: 065
  2. EVEROLIMUS. [Suspect]
     Active Substance: EVEROLIMUS
     Indication: LUNG TRANSPLANT
     Route: 065
  3. PREDNISOLONE. [Concomitant]
     Active Substance: PREDNISOLONE
     Indication: LUNG TRANSPLANT
  4. TACROLIMUS. [Suspect]
     Active Substance: TACROLIMUS
     Indication: LUNG TRANSPLANT

REACTIONS (10)
  - Skin infection [Unknown]
  - Thrombotic microangiopathy [Recovered/Resolved]
  - Therapy change [Unknown]
  - Blood lactate dehydrogenase increased [Unknown]
  - Aortic thrombosis [Unknown]
  - Drug level increased [Unknown]
  - Product use in unapproved indication [Unknown]
  - Renal artery thrombosis [Unknown]
  - Leukopenia [Unknown]
  - Renal impairment [Unknown]
